FAERS Safety Report 25171115 (Version 1)
Quarter: 2025Q2

REPORT INFORMATION
  Report Type: Spontaneous
  Country: IT (occurrence: IT)
  Receive Date: 20250408
  Receipt Date: 20250408
  Transmission Date: 20250716
  Serious: Yes (Hospitalization, Other)
  Sender: AUROBINDO
  Company Number: IT-MINISAL02-1031600

PATIENT
  Age: 53 Year
  Sex: Male

DRUGS (3)
  1. RAMIPRIL [Suspect]
     Active Substance: RAMIPRIL
     Indication: Product used for unknown indication
     Route: 048
     Dates: start: 20250312, end: 20250312
  2. DUTASTERIDE [Suspect]
     Active Substance: DUTASTERIDE
     Indication: Product used for unknown indication
     Route: 048
     Dates: start: 20250312, end: 20250312
  3. SIMVASTATIN [Suspect]
     Active Substance: SIMVASTATIN
     Indication: Suicide attempt
     Route: 048
     Dates: start: 20250312, end: 20250312

REACTIONS (5)
  - Anuria [Not Recovered/Not Resolved]
  - Drug abuse [Not Recovered/Not Resolved]
  - Suicide attempt [Not Recovered/Not Resolved]
  - Hypotension [Not Recovered/Not Resolved]
  - Oliguria [Not Recovered/Not Resolved]

NARRATIVE: CASE EVENT DATE: 20250312
